FAERS Safety Report 25176407 (Version 1)
Quarter: 2025Q2

REPORT INFORMATION
  Report Type: Spontaneous
  Country: JP (occurrence: JP)
  Receive Date: 20250409
  Receipt Date: 20250409
  Transmission Date: 20250717
  Serious: Yes (Death, Life-Threatening)
  Sender: ACCORD
  Company Number: JP-MLMSERVICE-20250325-PI452147-00029-1

PATIENT
  Age: 5 Decade
  Sex: Female

DRUGS (5)
  1. SERTRALINE HYDROCHLORIDE [Suspect]
     Active Substance: SERTRALINE HYDROCHLORIDE
  2. ACETAMINOPHEN [Suspect]
     Active Substance: ACETAMINOPHEN
  3. CAFFEINE CITRATE [Suspect]
     Active Substance: CAFFEINE CITRATE
  4. ETIZOLAM [Suspect]
     Active Substance: ETIZOLAM
  5. TRAMADOL [Suspect]
     Active Substance: TRAMADOL

REACTIONS (6)
  - Toxicity to various agents [Fatal]
  - Intentional overdose [Fatal]
  - Completed suicide [Fatal]
  - Serotonin syndrome [Fatal]
  - Depressed level of consciousness [Fatal]
  - Asphyxia [Fatal]
